FAERS Safety Report 17212990 (Version 1)
Quarter: 2019Q4

REPORT INFORMATION
  Report Type: Spontaneous
  Country: TR (occurrence: TR)
  Receive Date: 20191230
  Receipt Date: 20191230
  Transmission Date: 20200122
  Serious: Yes (Hospitalization, Other)
  Sender: FDA-Public Use
  Company Number: TR-VISTAPHARM, INC.-VER201912-001505

PATIENT
  Age: 33 Year
  Sex: Male

DRUGS (5)
  1. AMOXICILLIN-CLAVULANIC ACID [Concomitant]
     Active Substance: AMOXICILLIN\CLAVULANIC ACID
     Indication: UPPER RESPIRATORY TRACT INFECTION
     Dosage: UNKNOWN
     Route: 048
  2. MORPHINE [Suspect]
     Active Substance: MORPHINE
     Indication: CHEST DISCOMFORT
     Dosage: 2 MG
     Route: 042
  3. MORPHINE [Suspect]
     Active Substance: MORPHINE
     Indication: PAIN
  4. CEFAZOLIN [Suspect]
     Active Substance: CEFAZOLIN
     Indication: UPPER RESPIRATORY TRACT INFECTION
     Dosage: UNKNOWN
  5. METHIMAZOLE. [Concomitant]
     Active Substance: METHIMAZOLE
     Indication: UPPER RESPIRATORY TRACT INFECTION
     Dosage: UNKNOWN
     Route: 042

REACTIONS (2)
  - Condition aggravated [Unknown]
  - Hypersensitivity [Unknown]
